FAERS Safety Report 10468061 (Version 4)
Quarter: 2014Q4

REPORT INFORMATION
  Report Type: Spontaneous
  Country: AT (occurrence: AT)
  Receive Date: 20140922
  Receipt Date: 20141008
  Transmission Date: 20150528
  Serious: Yes (Hospitalization, Other)
  Sender: FDA-Public Use
  Company Number: AT-PFIZER INC-2014257718

PATIENT
  Age: 80 Year
  Sex: Male

DRUGS (2)
  1. SORTIS [Suspect]
     Active Substance: ATORVASTATIN
     Dosage: 80 MG, UNK
     Dates: start: 201407
  2. PLAVIX [Concomitant]
     Active Substance: CLOPIDOGREL BISULFATE
     Indication: ISCHAEMIC STROKE
     Dosage: UNK
     Dates: start: 2014

REACTIONS (11)
  - General physical health deterioration [Unknown]
  - Confusional state [Recovering/Resolving]
  - Joint injury [Recovering/Resolving]
  - Restlessness [Recovering/Resolving]
  - Myalgia [Recovering/Resolving]
  - Arthralgia [Recovering/Resolving]
  - Peripheral swelling [Recovering/Resolving]
  - Fall [Recovered/Resolved]
  - Reactive psychosis [Recovering/Resolving]
  - Cerebrovascular accident [Unknown]
  - Muscular weakness [Recovering/Resolving]

NARRATIVE: CASE EVENT DATE: 2014
